FAERS Safety Report 14111333 (Version 1)
Quarter: 2017Q4

REPORT INFORMATION
  Report Type: Other
  Country: FR (occurrence: FR)
  Receive Date: 20171020
  Receipt Date: 20171020
  Transmission Date: 20180321
  Serious: Yes (Hospitalization, Other)
  Sender: FDA-Public Use
  Company Number: FR-EMCURE PHARMS-2017HTG00321

PATIENT
  Age: 48 Year
  Sex: Male

DRUGS (8)
  1. BICNU [Suspect]
     Active Substance: CARMUSTINE
     Indication: MANTLE CELL LYMPHOMA STAGE IV
     Dosage: 300 MG/M2, 1X/DAY
     Route: 042
     Dates: start: 20170726, end: 20170726
  2. ALKERAN [Suspect]
     Active Substance: MELPHALAN
     Indication: MANTLE CELL LYMPHOMA STAGE IV
     Dosage: 140 MG/M2, 1X/DAY
     Route: 042
     Dates: start: 20170731, end: 20170731
  3. NEXIUM [Concomitant]
     Active Substance: ESOMEPRAZOLE MAGNESIUM
  4. AZTREONAM. [Suspect]
     Active Substance: AZTREONAM
     Indication: ANTI-INFECTIVE THERAPY
     Dosage: UNK
     Route: 042
     Dates: start: 20170804, end: 20170814
  5. VANCOMYCIN [Suspect]
     Active Substance: VANCOMYCIN
     Indication: ANTI-INFECTIVE THERAPY
     Dosage: UNK
     Route: 042
     Dates: start: 20170804, end: 20170814
  6. FLAGYL [Suspect]
     Active Substance: METRONIDAZOLE\METRONIDAZOLE HYDROCHLORIDE
     Indication: ANTI-INFECTIVE THERAPY
     Dosage: UNK
     Route: 042
     Dates: start: 20170804, end: 20170814
  7. CYTARABINE. [Suspect]
     Active Substance: CYTARABINE
     Indication: MANTLE CELL LYMPHOMA STAGE IV
     Dosage: 400 MG/M2, 1X/DAY
     Route: 042
     Dates: start: 20170727, end: 20170730
  8. ETOPOSIDE. [Suspect]
     Active Substance: ETOPOSIDE
     Indication: MANTLE CELL LYMPHOMA STAGE IV
     Dosage: 200-400 MG/M2, 1X/DAY
     Route: 042
     Dates: start: 20170727, end: 20170730

REACTIONS (3)
  - Hepatocellular injury [Recovering/Resolving]
  - Gamma-glutamyltransferase increased [Not Recovered/Not Resolved]
  - Aplasia [Recovered/Resolved]

NARRATIVE: CASE EVENT DATE: 20170803
